FAERS Safety Report 8949762 (Version 1)
Quarter: 2012Q4

REPORT INFORMATION
  Report Type: Report from Study
  Country: JP (occurrence: JP)
  Receive Date: 20121206
  Receipt Date: 20121206
  Transmission Date: 20130627
  Serious: Yes (Death)
  Sender: FDA-Public Use
  Company Number: JP-ROCHE-1162484

PATIENT
  Age: 67 Year
  Sex: Female
  Weight: 56 kg

DRUGS (9)
  1. PEG-INTERFERON ALFA 2A [Suspect]
     Indication: HEPATIC CIRRHOSIS
     Dosage: Dosage is uncertain.
     Route: 058
     Dates: start: 20110225, end: 20110826
  2. PEG-INTERFERON ALFA 2A [Suspect]
     Indication: HEPATIC CIRRHOSIS
     Route: 058
     Dates: start: 20110909, end: 20111129
  3. PEG-INTERFERON ALFA 2A [Suspect]
     Indication: HEPATIC CIRRHOSIS
     Route: 058
     Dates: start: 20111202, end: 20111205
  4. RIBAVIRIN [Suspect]
     Indication: HEPATIC CIRRHOSIS
     Dosage: Dosage is uncertain.
     Route: 048
     Dates: start: 20110225, end: 20110826
  5. RIBAVIRIN [Suspect]
     Indication: HEPATIC CIRRHOSIS
     Route: 048
     Dates: start: 20110909, end: 20111205
  6. NORVASC [Concomitant]
     Route: 048
     Dates: end: 20111223
  7. LIVACT [Concomitant]
     Route: 048
     Dates: end: 20111223
  8. URSO [Concomitant]
     Indication: HEPATIC CIRRHOSIS
     Route: 048
     Dates: end: 20111223
  9. PARIET [Concomitant]
     Route: 048
     Dates: end: 20111223

REACTIONS (2)
  - Acute myeloid leukaemia [Fatal]
  - Cerebral haemorrhage [Fatal]
